FAERS Safety Report 5432286-9 (Version None)
Quarter: 2007Q3

REPORT INFORMATION
  Report Type: 
  Country: None (occurrence: None)
  Receive Date: 20070830
  Receipt Date: 20070828
  Transmission Date: 20080115
  Serious: Yes (Other)
  Sender: FDA-Public Use
  Company Number: CA-BRISTOL-MYERS SQUIBB COMPANY-13591623

PATIENT
  Age: 76 Year
  Sex: Male

DRUGS (2)
  1. ABATACEPT [Suspect]
     Indication: RHEUMATOID ARTHRITIS
     Route: 042
     Dates: start: 20020522
  2. METHOTREXATE [Suspect]
     Dates: start: 19980201, end: 20040706

REACTIONS (1)
  - BASAL CELL CARCINOMA [None]
